FAERS Safety Report 5272085-4 (Version None)
Quarter: 2007Q1

REPORT INFORMATION
  Report Type: 
  Country: None (occurrence: None)
  Receive Date: 20070322
  Receipt Date: 20070320
  Transmission Date: 20070707
  Serious: Yes (Hospitalization)
  Sender: FDA-Public Use
  Company Number: HQWYE525130JUN06

PATIENT
  Sex: Female
  Weight: 56.7 kg

DRUGS (7)
  1. SIROLIMUS [Suspect]
     Indication: PROPHYLAXIS AGAINST TRANSPLANT REJECTION
     Route: 048
     Dates: start: 20060615
  2. PROTONIX [Concomitant]
     Route: 048
  3. DAPSONE [Concomitant]
     Dosage: 50 MG, MONDAY AND THURSDAY
     Route: 048
     Dates: start: 20051102
  4. MULTI-VITAMINS [Concomitant]
     Dosage: DOSE UNKNOWN, ONE TABLET DAILY
     Route: 048
     Dates: start: 20050730
  5. PREDNISONE [Concomitant]
     Route: 048
     Dates: start: 20050818
  6. ACETYLSALICYLIC ACID SRT [Concomitant]
     Route: 048
     Dates: start: 20050728
  7. ACTONEL [Concomitant]
     Route: 048
     Dates: start: 20050728

REACTIONS (1)
  - GASTROENTERITIS [None]
